FAERS Safety Report 20642147 (Version 2)
Quarter: 2022Q2

REPORT INFORMATION
  Report Type: Spontaneous
  Country: LV (occurrence: LV)
  Receive Date: 20220328
  Receipt Date: 20220523
  Transmission Date: 20220720
  Serious: Yes (Life-Threatening, Hospitalization, Other)
  Sender: FDA-Public Use
  Company Number: LV-AVENTIS-200817328GDDC

PATIENT
  Age: 55 Year
  Sex: Female

DRUGS (4)
  1. TRAMADOL HYDROCHLORIDE [Suspect]
     Active Substance: TRAMADOL HYDROCHLORIDE
     Indication: Perineal pain
     Dosage: UNK
     Dates: start: 20191126
  2. TRAMADOL HYDROCHLORIDE [Suspect]
     Active Substance: TRAMADOL HYDROCHLORIDE
     Indication: Back pain
  3. DIAZEPAM [Concomitant]
     Active Substance: DIAZEPAM
     Indication: Perineal pain
     Dosage: UNK
     Dates: start: 20191126
  4. DIAZEPAM [Concomitant]
     Active Substance: DIAZEPAM
     Indication: Back pain

REACTIONS (3)
  - Anaphylactic reaction [Unknown]
  - Dyspnoea [Unknown]
  - Dysphagia [Unknown]

NARRATIVE: CASE EVENT DATE: 20191127
